FAERS Safety Report 10349424 (Version 1)
Quarter: 2014Q3

REPORT INFORMATION
  Report Type: Spontaneous
  Country: US (occurrence: None)
  Receive Date: 20140728
  Receipt Date: 20140728
  Transmission Date: 20150326
  Serious: Yes (Hospitalization)
  Sender: FDA-Public Use
  Company Number: None

PATIENT
  Age: 57 Year
  Sex: Male
  Weight: 89 kg

DRUGS (1)
  1. CETUXIMAB [Suspect]
     Active Substance: CETUXIMAB

REACTIONS (5)
  - Loss of consciousness [None]
  - Heart rate decreased [None]
  - Hypotension [None]
  - Syncope [None]
  - Pruritus [None]

NARRATIVE: CASE EVENT DATE: 20140402
